FAERS Safety Report 13258547 (Version 1)
Quarter: 2017Q1

REPORT INFORMATION
  Report Type: Spontaneous
  Country: CA (occurrence: CA)
  Receive Date: 20170222
  Receipt Date: 20170222
  Transmission Date: 20170428
  Serious: Yes (Other)
  Sender: FDA-Public Use
  Company Number: CA-ROCHE-1893886

PATIENT
  Weight: 78 kg

DRUGS (5)
  1. AVASTIN [Suspect]
     Active Substance: BEVACIZUMAB
     Indication: PRODUCT USED FOR UNKNOWN INDICATION
     Route: 065
  2. TIAZAC (CANADA) [Concomitant]
     Route: 065
     Dates: start: 20161111
  3. VALSARTAN. [Concomitant]
     Active Substance: VALSARTAN
     Route: 065
     Dates: start: 20161111
  4. AVASTIN [Suspect]
     Active Substance: BEVACIZUMAB
     Dosage: IV SITE- LEFT HAND.
     Route: 042
     Dates: start: 20170214
  5. HYDROCHLOROTHIAZIDE. [Concomitant]
     Active Substance: HYDROCHLOROTHIAZIDE
     Route: 065
     Dates: start: 20161111

REACTIONS (3)
  - Stomatitis [Recovering/Resolving]
  - Haematochezia [Unknown]
  - Infusion related reaction [Unknown]
